FAERS Safety Report 10182083 (Version 1)
Quarter: 2014Q2

REPORT INFORMATION
  Report Type: Spontaneous
  Country: JP (occurrence: JP)
  Receive Date: 20140520
  Receipt Date: 20140520
  Transmission Date: 20141212
  Serious: Yes (Hospitalization)
  Sender: FDA-Public Use
  Company Number: PHHY2014JP057064

PATIENT
  Age: 64 Year
  Sex: Female

DRUGS (3)
  1. PREDNISOLONE [Suspect]
     Indication: INTERSTITIAL LUNG DISEASE
     Dosage: 20 MG, UNK
  2. PREDNISOLONE [Suspect]
     Indication: AUTOIMMUNE HAEMOLYTIC ANAEMIA
     Dosage: 40 MG, UNK
  3. PREDNISOLONE [Suspect]
     Dosage: 20 MG, UNK

REACTIONS (12)
  - Paraparesis [Recovering/Resolving]
  - Thoracic vertebral fracture [Recovering/Resolving]
  - Back pain [Unknown]
  - Intercostal neuralgia [Recovering/Resolving]
  - Gait disturbance [Recovering/Resolving]
  - Muscular weakness [Recovering/Resolving]
  - Osteoporotic fracture [Recovering/Resolving]
  - Neuralgia [Recovering/Resolving]
  - Kyphosis [Recovering/Resolving]
  - Vertebral wedging [Recovering/Resolving]
  - Spinal cord oedema [Recovering/Resolving]
  - Epidural lipomatosis [Recovering/Resolving]
